FAERS Safety Report 9619138 (Version 1)
Quarter: 2013Q4

REPORT INFORMATION
  Report Type: Spontaneous
  Country: JP (occurrence: JP)
  Receive Date: 20131014
  Receipt Date: 20131014
  Transmission Date: 20140711
  Serious: Yes (Other)
  Sender: FDA-Public Use
  Company Number: JP-PFIZER INC-2013292418

PATIENT
  Sex: Male

DRUGS (1)
  1. LYRICA [Suspect]
     Dosage: 25 MG 2X/DAY (MORNING AND EVENING)
     Route: 048

REACTIONS (3)
  - Abnormal behaviour [Unknown]
  - Urinary incontinence [Unknown]
  - Faecal incontinence [Unknown]
